FAERS Safety Report 6036827-2 (Version None)
Quarter: 2009Q1

REPORT INFORMATION
  Report Type: 
  Country: None (occurrence: None)
  Receive Date: 20090114
  Receipt Date: 20090109
  Transmission Date: 20090719
  Serious: Yes (Death, Other)
  Sender: FDA-Public Use
  Company Number: PHBS2008US05895

PATIENT
  Age: 54 Year
  Sex: Male

DRUGS (3)
  1. IMATINIB MESYLATE [Suspect]
     Indication: SCLERODERMA
     Dosage: UNK
  2. IMATINIB MESYLATE [Suspect]
     Dosage: UNK
  3. CYCLOPHOSPHAMIDE [Suspect]
     Indication: SCLERODERMA
     Dosage: UNK

REACTIONS (3)
  - FLUID RETENTION [None]
  - LUNG DISORDER [None]
  - SCLERODERMA [None]
